FAERS Safety Report 9121506 (Version 1)
Quarter: 2013Q1

REPORT INFORMATION
  Report Type: Spontaneous
  Country: US (occurrence: US)
  Receive Date: 20130227
  Receipt Date: 20130227
  Transmission Date: 20140127
  Serious: No
  Sender: FDA-Public Use
  Company Number: US-009507513-1302USA010276

PATIENT
  Age: 57 Year
  Sex: Male
  Weight: 81.63 kg

DRUGS (4)
  1. VICTRELIS [Suspect]
     Dosage: 4 CAPSULES (800MG) BY MOUTH, THREE TIMES A DAY(EVERY 7-9 HOURS) WITH FOOD START ON WEEK 5
     Route: 048
  2. PEGASYS [Suspect]
  3. RIBAVIRIN [Suspect]
     Route: 048
  4. VITAMINS (UNSPECIFIED) [Concomitant]

REACTIONS (3)
  - Insomnia [Unknown]
  - Nausea [Unknown]
  - Decreased appetite [Unknown]
